FAERS Safety Report 13643295 (Version 2)
Quarter: 2017Q3

REPORT INFORMATION
  Report Type: Spontaneous
  Country: BR (occurrence: BR)
  Receive Date: 20170612
  Receipt Date: 20170817
  Transmission Date: 20171127
  Serious: Yes (Hospitalization, Other)
  Sender: FDA-Public Use
  Company Number: BR-PFIZER INC-2017251606

PATIENT
  Age: 82 Year
  Sex: Female

DRUGS (2)
  1. PREMARIN [Suspect]
     Active Substance: ESTROGENS, CONJUGATED
     Indication: HORMONE LEVEL ABNORMAL
     Dosage: 1 DRAGEE PER DAY, IN THE MORNING
     Dates: start: 2015, end: 201706
  2. SOMALIUM [Concomitant]
     Active Substance: BROMAZEPAM
     Dosage: 1/4 OF THE TABLET

REACTIONS (4)
  - Intentional product misuse [Recovered/Resolved]
  - Tibia fracture [Recovered/Resolved]
  - Road traffic accident [Recovered/Resolved]
  - Dysphonia [Not Recovered/Not Resolved]

NARRATIVE: CASE EVENT DATE: 2015
